FAERS Safety Report 11047308 (Version 1)
Quarter: 2015Q2

REPORT INFORMATION
  Report Type: Spontaneous
  Country: US (occurrence: US)
  Receive Date: 20150420
  Receipt Date: 20150420
  Transmission Date: 20150821
  Serious: Yes (Other)
  Sender: FDA-Public Use
  Company Number: US-MERCK-1504USA011188

PATIENT
  Age: 24 Year
  Sex: Male

DRUGS (1)
  1. PROSCAR [Suspect]
     Active Substance: FINASTERIDE
     Dosage: UNKNOWN
     Route: 048
     Dates: start: 2014

REACTIONS (6)
  - Depression [Unknown]
  - Penile size reduced [Unknown]
  - Facial wasting [Unknown]
  - Muscle atrophy [Unknown]
  - Loss of libido [Unknown]
  - Suicidal ideation [Unknown]

NARRATIVE: CASE EVENT DATE: 201409
